FAERS Safety Report 8301295-4 (Version None)
Quarter: 2012Q2

REPORT INFORMATION
  Report Type: 
  Country: None (occurrence: None)
  Receive Date: 20120420
  Receipt Date: 20120411
  Transmission Date: 20120825
  Serious: Yes (Hospitalization)
  Sender: FDA-Public Use
  Company Number: JP-EISAI INC-E3810-05442-SPO-JP

PATIENT
  Sex: Male

DRUGS (3)
  1. SELBEX [Concomitant]
     Dates: start: 20120409, end: 20120411
  2. OMEPRAZOLE [Concomitant]
     Indication: DUODENAL ULCER
     Route: 042
     Dates: start: 20120401
  3. RABEPRAZOLE SODIUM [Suspect]
     Indication: DUODENAL ULCER
     Route: 048
     Dates: start: 20120409, end: 20120411

REACTIONS (3)
  - LEUKOPENIA [None]
  - HEPATIC FAILURE [None]
  - RENAL FAILURE [None]
